FAERS Safety Report 8812910 (Version 1)
Quarter: 2012Q4

REPORT INFORMATION
  Report Type: 
  Country: US (occurrence: US)
  Receive Date: 20120927
  Receipt Date: 20120927
  Transmission Date: 20130627
  Serious: No
  Sender: FDA-Public Use
  Company Number: US-AMGEN-USASP2012037067

PATIENT
  Age: 56 Year
  Sex: Female

DRUGS (6)
  1. PROLIA [Suspect]
     Indication: OSTEOPOROSIS POSTMENOPAUSAL
     Dosage: 60 mg, UNK
     Route: 058
     Dates: start: 201111
  2. VIVELLE                            /00045401/ [Concomitant]
  3. LIPITOR [Concomitant]
  4. TIZANIDINE [Concomitant]
  5. PERCOCET                           /00446701/ [Concomitant]
  6. FENTANYL [Concomitant]

REACTIONS (3)
  - Cholelithiasis [Not Recovered/Not Resolved]
  - Arthralgia [Unknown]
  - Rash [Not Recovered/Not Resolved]
